FAERS Safety Report 8962589 (Version 1)
Quarter: 2012Q4

REPORT INFORMATION
  Report Type: 
  Country: CH (occurrence: CH)
  Receive Date: 20121214
  Receipt Date: 20121214
  Transmission Date: 20130627
  Serious: Yes (Other)
  Sender: FDA-Public Use
  Company Number: PHHY2012CH114873

PATIENT
  Sex: Male

DRUGS (2)
  1. EVEROLIMUS [Suspect]
     Indication: RENAL CELL CARCINOMA
     Dosage: UNK
     Dates: start: 20100916
  2. EVEROLIMUS [Suspect]
     Dosage: 5 mg, QD
     Route: 048
     Dates: end: 20110922

REACTIONS (5)
  - General physical health deterioration [Unknown]
  - Pneumonitis [Unknown]
  - Malignant neoplasm progression [Unknown]
  - Anaemia [Unknown]
  - Pyrexia [Unknown]
